FAERS Safety Report 6385713-7 (Version None)
Quarter: 2009Q4

REPORT INFORMATION
  Report Type: 
  Country: None (occurrence: None)
  Receive Date: 20091002
  Receipt Date: 20081006
  Transmission Date: 20100525
  Serious: No
  Sender: FDA-Public Use
  Company Number: US-ASTRAZENECA-2008UW21785

PATIENT
  Age: 56 Year
  Sex: Female
  Weight: 112.5 kg

DRUGS (6)
  1. ARIMIDEX [Suspect]
     Indication: BREAST CANCER STAGE I
     Route: 048
     Dates: start: 20040101
  2. LEVOXYL [Concomitant]
  3. CALCIUM [Concomitant]
  4. COLACE [Concomitant]
  5. ASPIRIN [Concomitant]
  6. MULTI-VITAMINS [Concomitant]

REACTIONS (3)
  - ARTHRALGIA [None]
  - ILL-DEFINED DISORDER [None]
  - OSTEOPENIA [None]
